FAERS Safety Report 7809048-8 (Version None)
Quarter: 2011Q4

REPORT INFORMATION
  Report Type: 
  Country: None (occurrence: None)
  Receive Date: 20111012
  Receipt Date: 20111003
  Transmission Date: 20120403
  Serious: Yes (Hospitalization)
  Sender: FDA-Public Use
  Company Number: US-BAYER-2011-062559

PATIENT
  Age: 39 Year
  Sex: Female
  Weight: 79.819 kg

DRUGS (11)
  1. LEXAPRO [Concomitant]
     Indication: DEPRESSION
  2. FUROSEMIDE [Concomitant]
     Indication: FLUID RETENTION
     Dosage: UNK
     Dates: start: 20090918, end: 20090920
  3. ALPRAZOLAM [Concomitant]
     Indication: ANXIETY
     Dosage: UNK
     Dates: start: 20080601
  4. YAZ [Suspect]
     Indication: MENSTRUATION IRREGULAR
  5. YAZ [Suspect]
     Indication: PREMENSTRUAL SYNDROME
  6. PANTOPRAZOLE [Concomitant]
     Indication: GASTROOESOPHAGEAL REFLUX DISEASE
     Dosage: UNK
     Dates: start: 20090501
  7. LEXAPRO [Concomitant]
     Indication: ANXIETY
     Dosage: UNK
     Dates: start: 20040101
  8. POTASSIUM CHLORIDE [Concomitant]
     Indication: MEDICAL DIET
     Dosage: UNK
     Dates: start: 20090918, end: 20090920
  9. YAZ [Suspect]
     Indication: CONTRACEPTION
     Dosage: UNK
     Dates: start: 20090107, end: 20090920
  10. SULFAMETHOXAZOLE AND TRIMETHOPRIM [Concomitant]
     Dosage: UNK
     Dates: start: 20090701
  11. ALPRAZOLAM [Concomitant]
     Indication: DEPRESSION

REACTIONS (4)
  - DYSPNOEA [None]
  - CHEST PAIN [None]
  - PULMONARY EMBOLISM [None]
  - INJURY [None]
